FAERS Safety Report 6297212-1 (Version None)
Quarter: 2009Q3

REPORT INFORMATION
  Report Type: 
  Country: None (occurrence: None)
  Receive Date: 20090804
  Receipt Date: 20090804
  Transmission Date: 20100115
  Serious: Yes (Disabling)
  Sender: FDA-Public Use
  Company Number: None

PATIENT
  Sex: Male
  Weight: 68.0396 kg

DRUGS (1)
  1. FLONASE [Suspect]
     Indication: HYPERSENSITIVITY
     Dosage: 50 MCG, 2 SPRAYS PER/SPRAY, ONCE DAILY
     Dates: start: 20040216, end: 20040317

REACTIONS (2)
  - AGEUSIA [None]
  - ANOSMIA [None]
